FAERS Safety Report 9354116 (Version 1)
Quarter: 2013Q2

REPORT INFORMATION
  Report Type: Spontaneous
  Country: GB (occurrence: GB)
  Receive Date: 20130618
  Receipt Date: 20130618
  Transmission Date: 20140414
  Serious: Yes (Life-Threatening, Hospitalization, Other)
  Sender: FDA-Public Use
  Company Number: GB-TEVA-412182ISR

PATIENT
  Age: 76 Year
  Sex: Male

DRUGS (8)
  1. METFORMIN [Suspect]
     Indication: TYPE 2 DIABETES MELLITUS
     Dosage: 3 GRAM DAILY;
     Route: 048
     Dates: start: 20110803, end: 20130520
  2. LISINOPRIL [Suspect]
     Indication: TYPE 2 DIABETES MELLITUS
     Dosage: 10 MILLIGRAM DAILY;
     Route: 048
     Dates: start: 20120528, end: 20130520
  3. ASPIRIN [Concomitant]
  4. LATANOPROST [Concomitant]
  5. PIOGLITAZONE [Concomitant]
  6. SIMVASTATIN [Concomitant]
  7. GLICLAZIDE [Concomitant]
  8. BRIMONIDINE [Concomitant]

REACTIONS (3)
  - Renal failure acute [Recovered/Resolved with Sequelae]
  - Lactic acidosis [Recovered/Resolved with Sequelae]
  - Systemic inflammatory response syndrome [Unknown]
